FAERS Safety Report 7523594-6 (Version None)
Quarter: 2011Q2

REPORT INFORMATION
  Report Type: 
  Country: None (occurrence: None)
  Receive Date: 20110601
  Receipt Date: 20110601
  Transmission Date: 20111010
  Serious: Yes (Other)
  Sender: FDA-Public Use
  Company Number: None

PATIENT

DRUGS (2)
  1. FLUORIDE TABLET, CHEWABLE 0.5 MG CYPRESS [Suspect]
  2. FLUORIDE TABLET, CHEWABLE 1 MG CYPRESS [Suspect]

REACTIONS (2)
  - PRODUCT FORMULATION ISSUE [None]
  - PRODUCT IDENTIFICATION NUMBER ISSUE [None]
